FAERS Safety Report 5454311-1 (Version None)
Quarter: 2007Q3

REPORT INFORMATION
  Report Type: 
  Country: None (occurrence: None)
  Receive Date: 20070917
  Receipt Date: 20070917
  Transmission Date: 20080115
  Serious: Yes (Hospitalization)
  Sender: FDA-Public Use
  Company Number: DEWYE133506AUG07

PATIENT
  Sex: Female
  Weight: 80 kg

DRUGS (5)
  1. VENLAFAXINE HCL [Suspect]
     Dosage: 20 TABLETS (OVERDOSE AMOUNT 3000MG)
     Route: 048
     Dates: start: 20070803, end: 20070803
  2. ETHANOL [Suspect]
     Dosage: ONE BOTTLE
     Route: 048
     Dates: start: 20070803, end: 20070803
  3. PIPAMPERONE [Suspect]
     Dosage: 44 TABLETS (OVERDOSE AMOUNT 1760 MG)
     Route: 048
     Dates: start: 20070803, end: 20070803
  4. CYMBALTA [Suspect]
     Dosage: 30 TABLETS (OVERDOSE AMOUNT 1800 MG)
     Route: 048
     Dates: start: 20070803, end: 20070803
  5. MIRTAZAPINE [Suspect]
     Dosage: 20 TABLETS (OVERDOSE AMOUNT 600 MG)
     Route: 048
     Dates: start: 20070803, end: 20070803

REACTIONS (3)
  - ASPIRATION [None]
  - INTENTIONAL OVERDOSE [None]
  - SOMNOLENCE [None]
